FAERS Safety Report 5184959-3 (Version None)
Quarter: 2006Q4

REPORT INFORMATION
  Report Type: 
  Country: None (occurrence: None)
  Receive Date: 20061220
  Receipt Date: 20060515
  Transmission Date: 20070319
  Serious: No
  Sender: FDA-Public Use
  Company Number: US-GLAXOSMITHKLINE-A0605528A

PATIENT
  Age: 72 Year
  Sex: Female

DRUGS (1)
  1. TARGET NTS 14MG [Suspect]
     Dates: start: 20060511, end: 20060515

REACTIONS (7)
  - APPLICATION SITE RASH [None]
  - DRY EYE [None]
  - EYE SWELLING [None]
  - EYELID MARGIN CRUSTING [None]
  - INSOMNIA [None]
  - LACRIMATION INCREASED [None]
  - VISION BLURRED [None]
